FAERS Safety Report 6135941-0 (Version None)
Quarter: 2009Q1

REPORT INFORMATION
  Report Type: 
  Country: None (occurrence: None)
  Receive Date: 20090329
  Receipt Date: 20080910
  Transmission Date: 20090719
  Serious: No
  Sender: FDA-Public Use
  Company Number: US-BAUSCH-2008BL003920

PATIENT
  Age: 64 Year
  Sex: Female

DRUGS (2)
  1. ALREX [Suspect]
     Indication: EYE INFLAMMATION
     Route: 047
     Dates: start: 20080829
  2. VIVELLE [Concomitant]
     Indication: HORMONE REPLACEMENT THERAPY

REACTIONS (4)
  - CHEST DISCOMFORT [None]
  - INSOMNIA [None]
  - PHARYNGEAL OEDEMA [None]
  - WHEEZING [None]
